FAERS Safety Report 14907652 (Version 1)
Quarter: 2018Q2

REPORT INFORMATION
  Report Type: Spontaneous
  Country: US (occurrence: US)
  Receive Date: 20180517
  Receipt Date: 20180517
  Transmission Date: 20180711
  Serious: Yes (Other)
  Sender: FDA-Public Use
  Company Number: US-ACCORD-067032

PATIENT
  Sex: Male
  Weight: .86 kg

DRUGS (5)
  1. VINCRISTINE [Suspect]
     Active Substance: VINCRISTINE
     Indication: HEPATOBLASTOMA
  2. DOXORUBICIN [Suspect]
     Active Substance: DOXORUBICIN
     Indication: HEPATOBLASTOMA
  3. CISPLATIN. [Concomitant]
     Active Substance: CISPLATIN
     Indication: HEPATOBLASTOMA
  4. FLUOROURACIL. [Suspect]
     Active Substance: FLUOROURACIL
     Indication: HEPATOBLASTOMA
  5. HEPARIN [Concomitant]
     Active Substance: HEPARIN SODIUM
     Dosage: 25 UNITS PER KILOGRAM

REACTIONS (4)
  - Hepatitis [Unknown]
  - Hepatic steatosis [Unknown]
  - Cholestasis [Unknown]
  - Venoocclusive disease [Unknown]
